FAERS Safety Report 13706373 (Version 2)
Quarter: 2017Q3

REPORT INFORMATION
  Report Type: Spontaneous
  Country: SE (occurrence: SE)
  Receive Date: 20170630
  Receipt Date: 20170727
  Transmission Date: 20171127
  Serious: Yes (Life-Threatening, Other)
  Sender: FDA-Public Use
  Company Number: SE-GLAXOSMITHKLINE-SE2017GSK100272

PATIENT
  Sex: Female

DRUGS (1)
  1. VOLTAREN [Suspect]
     Active Substance: DICLOFENAC SODIUM
     Indication: PRODUCT USED FOR UNKNOWN INDICATION

REACTIONS (7)
  - Angina pectoris [Unknown]
  - Dyspnoea [Unknown]
  - Product quality issue [Unknown]
  - Nonspecific reaction [Unknown]
  - Hypersensitivity [Unknown]
  - Apparent death [Unknown]
  - Drug intolerance [Unknown]
